FAERS Safety Report 25874036 (Version 2)
Quarter: 2025Q4

REPORT INFORMATION
  Report Type: Report from Study
  Country: US (occurrence: US)
  Receive Date: 20251002
  Receipt Date: 20251023
  Transmission Date: 20260119
  Serious: No
  Sender: LUNDBECK
  Company Number: US-LUNDBECK-DKLU4019903

PATIENT
  Age: 59 Year
  Sex: Female

DRUGS (2)
  1. VYEPTI [Suspect]
     Active Substance: EPTINEZUMAB-JJMR
     Indication: Migraine
     Dosage: 300 MILLIGRAM
     Route: 041
  2. BOTOX [Suspect]
     Active Substance: ONABOTULINUMTOXINA
     Indication: Migraine

REACTIONS (1)
  - Brain fog [Unknown]
